FAERS Safety Report 25058183 (Version 1)
Quarter: 2025Q1

REPORT INFORMATION
  Report Type: Spontaneous
  Country: HR (occurrence: HR)
  Receive Date: 20250310
  Receipt Date: 20250310
  Transmission Date: 20250409
  Serious: Yes (Other)
  Sender: CHEPLAPHARM
  Company Number: None

PATIENT
  Age: 55 Year
  Sex: Male

DRUGS (3)
  1. CLONAZEPAM [Suspect]
     Active Substance: CLONAZEPAM
     Dosage: DAILY DOSE: 20 MILLIGRAM
     Route: 048
     Dates: start: 20250115, end: 20250115
  2. ATORVASTATIN [Suspect]
     Active Substance: ATORVASTATIN
     Dosage: DAILY DOSE: 4 DOSAGE FORM
     Route: 048
     Dates: start: 20250115, end: 20250115
  3. TICAGRELOR [Suspect]
     Active Substance: TICAGRELOR
     Dosage: DAILY DOSE: 540 MILLIGRAM
     Route: 048
     Dates: start: 20250115, end: 20250115

REACTIONS (5)
  - Suicide attempt [Unknown]
  - Oxygen saturation decreased [Unknown]
  - Somnolence [Unknown]
  - Alcohol abuse [Unknown]
  - Intentional overdose [Unknown]

NARRATIVE: CASE EVENT DATE: 20250115
